FAERS Safety Report 6176112-1 (Version None)
Quarter: 2009Q2

REPORT INFORMATION
  Report Type: 
  Country: None (occurrence: None)
  Receive Date: 20090501
  Receipt Date: 20090423
  Transmission Date: 20091009
  Serious: Yes (Other)
  Sender: FDA-Public Use
  Company Number: FR-ABBOTT-09P-056-0569905-00

PATIENT
  Sex: Male

DRUGS (1)
  1. HUMIRA [Suspect]
     Indication: RHEUMATOID ARTHRITIS
     Route: 058
     Dates: start: 20080808, end: 20081201

REACTIONS (5)
  - ECZEMA [None]
  - LIP EROSION [None]
  - PRURITUS [None]
  - TOXIC SKIN ERUPTION [None]
  - XEROPHTHALMIA [None]
